FAERS Safety Report 13458311 (Version 3)
Quarter: 2017Q2

REPORT INFORMATION
  Report Type: Report from Study
  Country: US (occurrence: CA)
  Receive Date: 20170419
  Receipt Date: 20170518
  Transmission Date: 20170830
  Serious: Yes (Other)
  Sender: FDA-Public Use
  Company Number: US-SUNOVION-2017SUN001654

PATIENT
  Age: 52 Year
  Sex: Male

DRUGS (11)
  1. XOLAIR [Suspect]
     Active Substance: OMALIZUMAB
     Indication: ASTHMA
     Dosage: 375 MG, BIW
     Route: 058
     Dates: start: 20160923
  2. XOLAIR [Suspect]
     Active Substance: OMALIZUMAB
     Dosage: UNK, REGIMEN #3
     Route: 058
     Dates: start: 20170301
  3. VENTOLIN [Concomitant]
     Active Substance: ALBUTEROL SULFATE
     Dosage: 100 ?G, UNK
     Dates: start: 20060101
  4. ASMANEX [Concomitant]
     Active Substance: MOMETASONE FUROATE
     Dosage: 400 ?G, UNK
     Route: 048
     Dates: start: 20140101
  5. GLYCOPYRROLATE. [Suspect]
     Active Substance: GLYCOPYRROLATE
     Indication: PRODUCT USED FOR UNKNOWN INDICATION
     Dosage: 50 ?G, QD
     Route: 055
     Dates: start: 20160501
  6. XOLAIR [Suspect]
     Active Substance: OMALIZUMAB
     Dosage: UNK, REGIMEN #2
     Route: 058
     Dates: start: 20170213
  7. XOLAIR [Suspect]
     Active Substance: OMALIZUMAB
     Dosage: UNK, REGIMEN #5
     Route: 058
     Dates: start: 20170324
  8. XOLAIR [Suspect]
     Active Substance: OMALIZUMAB
     Dosage: UNK
     Route: 058
     Dates: start: 20170419
  9. ADVAIR HFA [Concomitant]
     Active Substance: FLUTICASONE PROPIONATE\SALMETEROL XINAFOATE
     Dosage: 250/50 ?G, UNK
     Dates: start: 20140101
  10. XOLAIR [Suspect]
     Active Substance: OMALIZUMAB
     Dosage: UNK, REGIMEN #4
     Route: 058
     Dates: start: 20170310
  11. SPIRIVA [Concomitant]
     Active Substance: TIOTROPIUM BROMIDE MONOHYDRATE
     Dosage: 2.5 ?G, UNK

REACTIONS (10)
  - Localised infection [Unknown]
  - Influenza [Unknown]
  - Tachycardia [Unknown]
  - Malaise [Unknown]
  - Cough [Unknown]
  - Wound [Unknown]
  - Lower limb fracture [Unknown]
  - Pruritus [Unknown]
  - Hypertension [Unknown]
  - Heart rate increased [Unknown]

NARRATIVE: CASE EVENT DATE: 201612
